FAERS Safety Report 24023928 (Version 3)
Quarter: 2024Q3

REPORT INFORMATION
  Report Type: Report from Study
  Country: IT (occurrence: IT)
  Receive Date: 20240627
  Receipt Date: 20240710
  Transmission Date: 20241016
  Serious: No
  Sender: ROCHE
  Company Number: IT-ROCHE-3522727

PATIENT
  Age: 82 Year

DRUGS (1)
  1. PHESGO [Suspect]
     Active Substance: HYALURONIDASE-ZZXF\PERTUZUMAB\TRASTUZUMAB
     Indication: Product used for unknown indication
     Dosage: LAST STUDY DRUG ADMINISTERED ON 14/FEB/2024
     Route: 058
     Dates: start: 20231213

REACTIONS (3)
  - Constipation [Recovered/Resolved]
  - Decreased appetite [Recovered/Resolved]
  - Nausea [Recovered/Resolved]

NARRATIVE: CASE EVENT DATE: 20240124
